FAERS Safety Report 7207842-8 (Version None)
Quarter: 2010Q4

REPORT INFORMATION
  Report Type: 
  Country: None (occurrence: None)
  Receive Date: 20101221
  Receipt Date: 20101207
  Transmission Date: 20110411
  Serious: Yes (Other)
  Sender: FDA-Public Use
  Company Number: 2010004979

PATIENT
  Age: 50 Year
  Sex: Female
  Weight: 49 kg

DRUGS (8)
  1. TARCEVA [Suspect]
     Indication: NON-SMALL CELL LUNG CANCER
     Dosage: (150 MG, QD), ORAL, (75 MG, QD), ORAL, (100 MG, QD), ORAL, (125 MG, QD), ORAL, (150 MG, QD), ORAL
     Route: 048
     Dates: start: 20100912, end: 20100913
  2. TARCEVA [Suspect]
     Indication: NON-SMALL CELL LUNG CANCER
     Dosage: (150 MG, QD), ORAL, (75 MG, QD), ORAL, (100 MG, QD), ORAL, (125 MG, QD), ORAL, (150 MG, QD), ORAL
     Route: 048
     Dates: start: 20100914, end: 20100916
  3. TARCEVA [Suspect]
     Indication: NON-SMALL CELL LUNG CANCER
     Dosage: (150 MG, QD), ORAL, (75 MG, QD), ORAL, (100 MG, QD), ORAL, (125 MG, QD), ORAL, (150 MG, QD), ORAL
     Route: 048
     Dates: start: 20100917, end: 20100929
  4. TARCEVA [Suspect]
     Indication: NON-SMALL CELL LUNG CANCER
     Dosage: (150 MG, QD), ORAL, (75 MG, QD), ORAL, (100 MG, QD), ORAL, (125 MG, QD), ORAL, (150 MG, QD), ORAL
     Route: 048
     Dates: start: 20100930, end: 20101001
  5. TARCEVA [Suspect]
     Indication: NON-SMALL CELL LUNG CANCER
     Dosage: (150 MG, QD), ORAL, (75 MG, QD), ORAL, (100 MG, QD), ORAL, (125 MG, QD), ORAL, (150 MG, QD), ORAL
     Route: 048
     Dates: start: 20101002, end: 20101110
  6. DECADRON [Concomitant]
  7. GASPORT [Concomitant]
  8. PRIMEPAN [Concomitant]

REACTIONS (9)
  - CONVULSION [None]
  - DIZZINESS [None]
  - HEADACHE [None]
  - METASTASES TO BONE [None]
  - METASTASES TO CENTRAL NERVOUS SYSTEM [None]
  - METASTASES TO LUNG [None]
  - NAUSEA [None]
  - OPTIC NEURITIS [None]
  - VOMITING [None]
